FAERS Safety Report 9349099 (Version 3)
Quarter: 2013Q3

REPORT INFORMATION
  Report Type: Report from Study
  Country: US (occurrence: US)
  Receive Date: 20130614
  Receipt Date: 20130910
  Transmission Date: 20140515
  Serious: Yes (Hospitalization)
  Sender: FDA-Public Use
  Company Number: US-PFIZER INC-2013171500

PATIENT
  Age: 62 Year
  Sex: Male
  Weight: 78.7 kg

DRUGS (12)
  1. AXITINIB [Suspect]
     Indication: METASTATIC RENAL CELL CARCINOMA
     Dosage: 5 MG, 2X/DAY LEAD-IN PERIOD
     Route: 048
     Dates: start: 20100409
  2. AXITINIB [Suspect]
     Indication: METASTATIC RENAL CELL CARCINOMA
     Dosage: 2 MG, 2X/DAY
     Route: 048
     Dates: start: 20100506
  3. SIMVASTATIN [Concomitant]
     Indication: BLOOD CHOLESTEROL
     Dosage: 40 MG, DAILY
     Route: 048
     Dates: start: 2009
  4. VITAMIN D3 [Concomitant]
     Indication: SUPPLEMENTATION THERAPY
     Dosage: 5000 IU, 1X/DAY
     Route: 048
     Dates: start: 2010
  5. VITAMIN B6 [Concomitant]
     Indication: SUPPLEMENTATION THERAPY
     Dosage: 100 MG, DAILY
     Route: 048
     Dates: start: 2010
  6. COUMADIN [Concomitant]
     Indication: THROMBOSIS
     Dosage: 5 MG, DAILY
     Route: 048
     Dates: start: 20110322
  7. FLOMAX [Concomitant]
     Indication: POLLAKIURIA
     Dosage: 0.4 MG, DAILY
     Route: 048
     Dates: start: 201103
  8. LASIX [Concomitant]
     Indication: OEDEMA
     Dosage: 20 MG, DAILY
     Route: 048
     Dates: start: 20130502
  9. PROCARDIA XL [Concomitant]
     Indication: HYPERTENSION
     Dosage: 30 MG, DAILY
     Route: 048
     Dates: start: 20130110
  10. LEVOTHYROXINE [Concomitant]
     Indication: THYROID HORMONE REPLACEMENT THERAPY
     Dosage: 0.25 UG, DAILY
     Route: 048
     Dates: start: 20120205
  11. PRILOSEC [Concomitant]
     Indication: GASTROOESOPHAGEAL REFLUX DISEASE
     Dosage: 20 MG, DAILY
     Route: 048
     Dates: start: 2011
  12. VITAMIN D [Concomitant]
     Indication: SUPPLEMENTATION THERAPY
     Dosage: 500 IU, DAILY
     Route: 048
     Dates: start: 2010

REACTIONS (1)
  - Pneumonia [Recovered/Resolved]
